FAERS Safety Report 15255861 (Version 1)
Quarter: 2018Q3

REPORT INFORMATION
  Report Type: Spontaneous
  Country: EG (occurrence: EG)
  Receive Date: 20180808
  Receipt Date: 20180808
  Transmission Date: 20181010
  Serious: Yes (Death)
  Sender: FDA-Public Use
  Company Number: EG-SA-2018SA213118

PATIENT
  Age: 3 Year
  Sex: Male
  Weight: 10 kg

DRUGS (3)
  1. VITAMIN D [COLECALCIFEROL] [Concomitant]
     Indication: BONE DISORDER
     Dosage: 500 U, QD
     Dates: start: 20170920
  2. CEREZYME [Suspect]
     Active Substance: IMIGLUCERASE
     Indication: GAUCHER^S DISEASE TYPE I
     Dosage: UNK; 60/KG UNITS; QOW
     Route: 041
     Dates: start: 20160920, end: 20170905
  3. CALCIUM [Concomitant]
     Active Substance: CALCIUM
     Indication: BONE DISORDER
     Dosage: 25 MG, QD
     Dates: start: 20170920

REACTIONS (4)
  - Hepatic failure [Fatal]
  - Hepatic cirrhosis [Fatal]
  - Portal hypertension [Fatal]
  - Haematemesis [Fatal]

NARRATIVE: CASE EVENT DATE: 20170915
